FAERS Safety Report 22259255 (Version 1)
Quarter: 2023Q2

REPORT INFORMATION
  Report Type: Other
  Country: JP (occurrence: JP)
  Receive Date: 20230427
  Receipt Date: 20230427
  Transmission Date: 20230722
  Serious: Yes (Hospitalization, Other)
  Sender: FDA-Public Use
  Company Number: JP-DEXPHARM-20230965

PATIENT
  Age: 84 Year
  Sex: Female

DRUGS (2)
  1. LANSOPRAZOLE [Suspect]
     Active Substance: LANSOPRAZOLE
     Dosage: NA
  2. ASPIRIN [Suspect]
     Active Substance: ASPIRIN
     Dosage: NA

REACTIONS (2)
  - Colitis microscopic [Recovered/Resolved]
  - Oedema [Recovered/Resolved]
